FAERS Safety Report 4973165-0 (Version None)
Quarter: 2006Q2

REPORT INFORMATION
  Report Type: 
  Country: None (occurrence: None)
  Receive Date: 20060414
  Receipt Date: 20051003
  Transmission Date: 20061013
  Serious: Yes (Death, Hospitalization)
  Sender: FDA-Public Use
  Company Number: US-MERCK-0510USA02846

PATIENT
  Age: 59 Year
  Sex: Male

DRUGS (1)
  1. VIOXX [Suspect]
     Indication: OSTEOARTHRITIS
     Route: 048
     Dates: start: 20010122

REACTIONS (6)
  - GASTROOESOPHAGEAL REFLUX DISEASE [None]
  - LEUKAEMIA [None]
  - MUSCULAR WEAKNESS [None]
  - NEPHROLITHIASIS [None]
  - RENAL FAILURE [None]
  - TOOTHACHE [None]
